FAERS Safety Report 24757315 (Version 1)
Quarter: 2024Q4

REPORT INFORMATION
  Report Type: Other
  Country: CA (occurrence: CA)
  Receive Date: 20241220
  Receipt Date: 20241220
  Transmission Date: 20250114
  Serious: Yes (Hospitalization, Other)
  Sender: ANI
  Company Number: CA-ANIPHARMA-014072

PATIENT
  Sex: Male

DRUGS (2)
  1. INDOMETHACIN [Suspect]
     Active Substance: INDOMETHACIN
     Indication: Headache
     Route: 048
  2. TRANDOLAPRIL [Concomitant]
     Active Substance: TRANDOLAPRIL
     Indication: Product used for unknown indication

REACTIONS (1)
  - Hypertensive encephalopathy [Recovered/Resolved]
